FAERS Safety Report 15462107 (Version 1)
Quarter: 2018Q4

REPORT INFORMATION
  Report Type: Spontaneous
  Country: US (occurrence: US)
  Receive Date: 20181001
  Receipt Date: 20181001
  Transmission Date: 20190204
  Serious: No
  Sender: FDA-Public Use
  Company Number: None

PATIENT
  Age: 39 Year
  Sex: Female
  Weight: 81.45 kg

DRUGS (2)
  1. SENSODYNE REPAIR AND PROTECT [Suspect]
     Active Substance: STANNOUS FLUORIDE
     Indication: SENSITIVITY OF TEETH
     Route: 048
     Dates: start: 20180922, end: 20180930
  2. MULTIVITAMIN [Concomitant]
     Active Substance: VITAMINS

REACTIONS (6)
  - Lip dry [None]
  - Pharyngeal hypoaesthesia [None]
  - Throat irritation [None]
  - Cheilitis [None]
  - Lip swelling [None]
  - Oral discomfort [None]

NARRATIVE: CASE EVENT DATE: 20181001
